FAERS Safety Report 6688236-0 (Version None)
Quarter: 2010Q2

REPORT INFORMATION
  Report Type: 
  Country: None (occurrence: None)
  Receive Date: 20100420
  Receipt Date: 20100413
  Transmission Date: 20101027
  Serious: Yes (Hospitalization)
  Sender: FDA-Public Use
  Company Number: US-SANOFI-AVENTIS-2010SA013016

PATIENT
  Age: 60 Year
  Sex: Male
  Weight: 98.4 kg

DRUGS (10)
  1. MULTAQ [Suspect]
     Indication: ATRIAL FIBRILLATION
     Route: 048
     Dates: start: 20091019, end: 20091025
  2. BENICAR [Concomitant]
     Indication: HYPERTENSION
  3. ASPIRIN [Concomitant]
  4. COUMADIN [Concomitant]
  5. METOPROLOL TARTRATE [Concomitant]
  6. CRESTOR [Concomitant]
  7. VIAGRA [Concomitant]
  8. VIAGRA [Concomitant]
     Dates: start: 20091021, end: 20091021
  9. MELATONIN [Concomitant]
  10. AVODART [Concomitant]

REACTIONS (7)
  - ASTHENIA [None]
  - CARDIAC FAILURE CONGESTIVE [None]
  - COUGH [None]
  - DYSPNOEA [None]
  - NON-CARDIAC CHEST PAIN [None]
  - PLEURAL EFFUSION [None]
  - SINUS BRADYCARDIA [None]
